FAERS Safety Report 20762229 (Version 2)
Quarter: 2022Q2

REPORT INFORMATION
  Report Type: Spontaneous
  Country: VN (occurrence: VN)
  Receive Date: 20220428
  Receipt Date: 20220429
  Transmission Date: 20220721
  Serious: No
  Sender: FDA-Public Use
  Company Number: VN-ELI_LILLY_AND_COMPANY-VN202204008189

PATIENT
  Age: 65 Year
  Sex: Male

DRUGS (2)
  1. ALIMTA [Suspect]
     Active Substance: PEMETREXED DISODIUM
     Indication: Non-small cell lung cancer
     Dosage: 500 MG/M2, DAILY
     Route: 042
     Dates: start: 202005
  2. PLATINUM [Concomitant]
     Active Substance: PLATINUM
     Indication: Non-small cell lung cancer

REACTIONS (1)
  - Therapy partial responder [Unknown]
